FAERS Safety Report 6615677-X (Version None)
Quarter: 2010Q1

REPORT INFORMATION
  Report Type: 
  Country: None (occurrence: None)
  Receive Date: 20100305
  Receipt Date: 20100302
  Transmission Date: 20100710
  Serious: Yes (Death)
  Sender: FDA-Public Use
  Company Number: US-SANOFI-AVENTIS-2010SA002014

PATIENT
  Sex: Male

DRUGS (5)
  1. OPTICLICK [Suspect]
  2. APIDRA [Suspect]
     Route: 065
  3. SOLOSTAR [Suspect]
  4. LANTUS [Suspect]
     Route: 058
  5. PREDNISONE [Suspect]
     Route: 065

REACTIONS (5)
  - BLOOD GLUCOSE INCREASED [None]
  - DEATH [None]
  - DEVICE FAILURE [None]
  - DRUG INEFFECTIVE [None]
  - PRODUCT QUALITY ISSUE [None]
